FAERS Safety Report 7428870-3 (Version None)
Quarter: 2011Q2

REPORT INFORMATION
  Report Type: 
  Country: None (occurrence: None)
  Receive Date: 20110421
  Receipt Date: 20110406
  Transmission Date: 20111010
  Serious: Yes (Hospitalization, Other)
  Sender: FDA-Public Use
  Company Number: ES-JNJFOC-20100605564

PATIENT
  Age: 55 Year
  Sex: Female

DRUGS (5)
  1. FENTANYL [Suspect]
     Indication: ANALGESIC THERAPY
     Route: 062
  2. BUPRENORPHINE [Suspect]
     Indication: ANALGESIC THERAPY
     Route: 062
  3. TRAMADOL HCL [Suspect]
     Indication: ANALGESIC THERAPY
     Route: 065
  4. OXYCODONE HCL [Suspect]
     Indication: ANALGESIC THERAPY
     Route: 048
  5. MORPHINE [Suspect]
     Indication: ANALGESIC THERAPY
     Route: 048

REACTIONS (5)
  - INTESTINAL OBSTRUCTION [None]
  - CONSTIPATION [None]
  - HAEMORRHOIDS [None]
  - ADVERSE EVENT [None]
  - TREATMENT FAILURE [None]
